FAERS Safety Report 9054819 (Version 1)
Quarter: 2013Q1

REPORT INFORMATION
  Report Type: Spontaneous
  Country: EC (occurrence: EC)
  Receive Date: 20130209
  Receipt Date: 20130209
  Transmission Date: 20140127
  Serious: Yes (Hospitalization, Other)
  Sender: FDA-Public Use
  Company Number: PHHY2013EC012046

PATIENT
  Age: 74 None
  Sex: Male

DRUGS (5)
  1. DIOVAN HCT [Suspect]
     Indication: HYPERTENSION
     Dosage: 1 DF, Q72H (APPROXIMATELY 2 TO 3 TABLETS BY WEEK.) (160 MG VALS AND 25 MG HCTZ)
  2. LOSARTAN [Concomitant]
     Indication: HYPERTENSION
     Dosage: 1 DF, QD
     Route: 048
  3. GLUCOSAMINE [Concomitant]
     Indication: OSTEOARTHRITIS
  4. FLEXURE [Concomitant]
  5. SINOVIOL [Concomitant]

REACTIONS (2)
  - Epistaxis [Recovered/Resolved]
  - Vascular rupture [Unknown]
